FAERS Safety Report 24735481 (Version 1)
Quarter: 2024Q4

REPORT INFORMATION
  Report Type: Spontaneous
  Country: US (occurrence: US)
  Receive Date: 20241216
  Receipt Date: 20241216
  Transmission Date: 20250115
  Serious: Yes (Other)
  Sender: STRIDES
  Company Number: US-STRIDES ARCOLAB LIMITED-2024SP016493

PATIENT
  Age: 4 Decade
  Sex: Male

DRUGS (1)
  1. TOPIRAMATE [Suspect]
     Active Substance: TOPIRAMATE
     Indication: Weight decreased
     Dosage: UNK
     Route: 065

REACTIONS (3)
  - Choroidal effusion [Recovered/Resolved]
  - Myopia [Recovered/Resolved]
  - Off label use [Unknown]
